FAERS Safety Report 19689208 (Version 3)
Quarter: 2021Q3

REPORT INFORMATION
  Report Type: Spontaneous
  Country: IN (occurrence: IN)
  Receive Date: 20210812
  Receipt Date: 20210903
  Transmission Date: 20211014
  Serious: Yes (Other)
  Sender: FDA-Public Use
  Company Number: IN-SUN PHARMACEUTICAL INDUSTRIES LTD-2021R1-307106

PATIENT
  Age: 30 Year
  Sex: Female

DRUGS (6)
  1. DROSPIRENONE/ ETHINYL ESTRADIOL [Interacting]
     Active Substance: DROSPIRENONE\ETHINYL ESTRADIOL
     Indication: HIRSUTISM
  2. FLUTAMIDE. [Concomitant]
     Active Substance: FLUTAMIDE
     Indication: HIRSUTISM
     Dosage: 750 MILLIGRAM, CONTINUOUSLY
     Route: 065
  3. CLOZAPINE. [Suspect]
     Active Substance: CLOZAPINE
     Indication: SCHIZOPHRENIA
     Dosage: 200 MILLIGRAM, DAILY
     Route: 065
  4. CLOZAPINE. [Interacting]
     Active Substance: CLOZAPINE
     Dosage: 350 MILLIGRAM, DAILY
     Route: 065
  5. DROSPIRENONE/ ETHINYL ESTRADIOL [Interacting]
     Active Substance: DROSPIRENONE\ETHINYL ESTRADIOL
     Indication: MENSTRUATION IRREGULAR
     Dosage: 3MG AND 0.03 MG
     Route: 048
  6. FLUTAMIDE. [Concomitant]
     Active Substance: FLUTAMIDE
     Indication: MENSTRUATION IRREGULAR

REACTIONS (3)
  - Drug level increased [Unknown]
  - Condition aggravated [Unknown]
  - Drug interaction [Unknown]
